FAERS Safety Report 6601682-6 (Version None)
Quarter: 2010Q1

REPORT INFORMATION
  Report Type: 
  Country: None (occurrence: None)
  Receive Date: 20100218
  Receipt Date: 20100127
  Transmission Date: 20100710
  Serious: Yes (Hospitalization)
  Sender: FDA-Public Use
  Company Number: 2009AC000328

PATIENT
  Age: 66 Year
  Sex: Male

DRUGS (28)
  1. DIGOXIN [Suspect]
     Dosage: 0.25 MG; PO
     Route: 048
     Dates: start: 20071116
  2. DIGOXIN [Suspect]
     Dates: start: 20040528
  3. UROZATROL [Concomitant]
  4. THERALITH XR [Concomitant]
  5. LISINOPRIL [Concomitant]
  6. HYDRALAZINE HCL [Concomitant]
  7. INDAPAMIDE [Concomitant]
  8. ASPIRIN [Concomitant]
  9. NOVOLIN INSULIN [Concomitant]
  10. METFORMIN HYDROCHLORIDE [Concomitant]
  11. LIPITOR [Concomitant]
  12. PREVACID [Concomitant]
  13. LOVAZA [Concomitant]
  14. MULTI-VITAMIN [Concomitant]
  15. DOXYCYCLINE [Concomitant]
  16. ECOTRIN [Concomitant]
  17. LIPITOR [Concomitant]
  18. LISINOPRIL [Concomitant]
  19. ECOTRIN [Concomitant]
  20. INDAPAMIDE [Concomitant]
  21. NOVOLIN [Concomitant]
  22. METFORMIN HYDROCHLORIDE [Concomitant]
  23. PREVACID [Concomitant]
  24. CAPOTEN [Concomitant]
  25. AMARYL [Concomitant]
  26. MEVACOR [Concomitant]
  27. ACTOS [Concomitant]
  28. COUMADIN [Concomitant]

REACTIONS (32)
  - ABDOMINAL PAIN [None]
  - AORTIC STENOSIS [None]
  - ASTHENIA [None]
  - ATRIAL FIBRILLATION [None]
  - ATRIOVENTRICULAR BLOCK COMPLETE [None]
  - BRADYCARDIA [None]
  - BRONCHITIS [None]
  - CALCULUS URETERIC [None]
  - CARDIOMEGALY [None]
  - DECREASED APPETITE [None]
  - DYSPNOEA [None]
  - GALLBLADDER POLYP [None]
  - GALLSTONE ILEUS [None]
  - HAEMATURIA [None]
  - HYDRONEPHROSIS [None]
  - HYPERHIDROSIS [None]
  - HYPERTENSION [None]
  - ILEUS [None]
  - MUSCLE SPASMS [None]
  - NEPHROLITHIASIS [None]
  - NEUROPATHY PERIPHERAL [None]
  - NOCTURIA [None]
  - OSTEOMYELITIS [None]
  - PAIN IN EXTREMITY [None]
  - PRODUCTIVE COUGH [None]
  - PULMONARY EMBOLISM [None]
  - RETINOPATHY [None]
  - SICK SINUS SYNDROME [None]
  - THERAPEUTIC AGENT TOXICITY [None]
  - THYROID CYST [None]
  - UNEVALUABLE EVENT [None]
  - URETERIC OBSTRUCTION [None]
